FAERS Safety Report 18706196 (Version 1)
Quarter: 2021Q1

REPORT INFORMATION
  Report Type: Other
  Country: US (occurrence: US)
  Receive Date: 20210106
  Receipt Date: 20210106
  Transmission Date: 20210419
  Serious: Yes (Other)
  Sender: FDA-Public Use
  Company Number: US-ROCHE-2743826

PATIENT
  Sex: Female

DRUGS (2)
  1. OCREVUS [Suspect]
     Active Substance: OCRELIZUMAB
     Indication: RELAPSING MULTIPLE SCLEROSIS
     Dosage: PRESCRIBED WITH INFUSE 300 MG DAY 1 THEN 300 MG DAY 15 AND LATER 600 MG EVERY 6 MONTHS?DATE OF TREAT
     Route: 042
  2. OCREVUS [Suspect]
     Active Substance: OCRELIZUMAB
     Dosage: DATE OF TREATMENT: 22/MAR/2019, 25/SEP/2019, 13/MAR/2020, 04/SEP/2020
     Route: 042
     Dates: start: 2019, end: 202011

REACTIONS (1)
  - Urinary tract infection [Recovered/Resolved]
